FAERS Safety Report 23049972 (Version 1)
Quarter: 2023Q4

REPORT INFORMATION
  Report Type: Other
  Country: US (occurrence: None)
  Receive Date: 20231010
  Receipt Date: 20231010
  Transmission Date: 20240110
  Serious: Yes (Hospitalization)
  Sender: FDA-Public Use
  Company Number: US-ROCHE-3433635

PATIENT
  Age: 62 Year
  Sex: Female
  Weight: 83.99 kg

DRUGS (12)
  1. OCREVUS [Suspect]
     Active Substance: OCRELIZUMAB
     Indication: Relapsing multiple sclerosis
     Dosage: LAST DATE OF TREATMENT: 03/AUG/2023?ANTICIPATED DATE OF TREATMENT: 19/JAN/2021
     Route: 042
  2. BACLOFEN [Concomitant]
     Active Substance: BACLOFEN
  3. ACTHAR [Concomitant]
     Active Substance: CORTICOTROPIN
  4. BUSPIRONE [Concomitant]
     Active Substance: BUSPIRONE HYDROCHLORIDE
  5. LORATADINE [Concomitant]
     Active Substance: LORATADINE
  6. DEXTROAMPHETAMINE [Concomitant]
     Active Substance: DEXTROAMPHETAMINE
  7. DIAZEPAM [Concomitant]
     Active Substance: DIAZEPAM
  8. FLONASE [Concomitant]
     Active Substance: FLUTICASONE PROPIONATE
  9. METOPROLOL [Concomitant]
     Active Substance: METOPROLOL
  10. PROAIR HFA [Concomitant]
     Active Substance: ALBUTEROL SULFATE
  11. SUMATRIPTAN [Concomitant]
     Active Substance: SUMATRIPTAN
  12. TRAZODONE [Concomitant]
     Active Substance: TRAZODONE HYDROCHLORIDE

REACTIONS (2)
  - COVID-19 pneumonia [Not Recovered/Not Resolved]
  - Sepsis [Recovered/Resolved]

NARRATIVE: CASE EVENT DATE: 20230101
